FAERS Safety Report 6335046-X (Version None)
Quarter: 2009Q3

REPORT INFORMATION
  Report Type: 
  Country: None (occurrence: None)
  Receive Date: 20090831
  Receipt Date: 20090819
  Transmission Date: 20100115
  Serious: Yes (Hospitalization)
  Sender: FDA-Public Use
  Company Number: A0731296A

PATIENT
  Age: 63 Year
  Sex: Female
  Weight: 111.4 kg

DRUGS (17)
  1. AVANDIA [Suspect]
     Dosage: 8MG PER DAY
     Route: 048
     Dates: start: 20000516, end: 20060401
  2. VIOXX [Concomitant]
  3. LIPITOR [Concomitant]
  4. LORAZEPAM [Concomitant]
     Dates: start: 20000101
  5. PROZAC [Concomitant]
     Dates: start: 20040101
  6. ACCUPRIL [Concomitant]
  7. RANITIDINE [Concomitant]
  8. POTASSIUM CHLORIDE [Concomitant]
  9. CARDURA [Concomitant]
  10. ZAROXOLYN [Concomitant]
  11. MEDROXYPROGESTERONE [Concomitant]
  12. LORAZEPAM [Concomitant]
  13. NASACORT [Concomitant]
  14. RANITIDINE [Concomitant]
  15. PROZAC [Concomitant]
  16. INSULIN [Concomitant]
  17. SYNTHROID [Concomitant]

REACTIONS (4)
  - ANGINA PECTORIS [None]
  - AORTIC VALVE DISEASE [None]
  - CARDIAC FAILURE CONGESTIVE [None]
  - MYOCARDIAL ISCHAEMIA [None]
